FAERS Safety Report 8425181-4 (Version None)
Quarter: 2012Q2

REPORT INFORMATION
  Report Type: 
  Country: None (occurrence: None)
  Receive Date: 20120521
  Receipt Date: 20120503
  Transmission Date: 20120825
  Serious: Yes (Other)
  Sender: FDA-Public Use
  Company Number: 2011028047

PATIENT
  Sex: Female
  Weight: 75.7507 kg

DRUGS (23)
  1. HIZENTRA [Suspect]
     Indication: IMMUNODEFICIENCY
     Dosage: (10 G 1X/WEEK, INFUSED 50ML SUBCUTANEOUS)
     Route: 058
     Dates: start: 20101111
  2. HIZENTRA [Suspect]
     Indication: IMMUNODEFICIENCY
     Dosage: (10 G 1X/WEEK, INFUSED 50ML SUBCUTANEOUS)
     Route: 058
     Dates: start: 20110222, end: 20110308
  3. HIZENTRA [Suspect]
     Indication: IMMUNODEFICIENCY
     Dosage: (10 G 1X/WEEK, INFUSED 50ML SUBCUTANEOUS)
     Route: 058
     Dates: start: 20110222, end: 20110308
  4. VITAMIN D [Concomitant]
  5. HIZENTRA [Suspect]
  6. PREDNISONE TAB [Concomitant]
  7. ALBUTEROL [Concomitant]
  8. COENZYME Q (UBIDECARENONE) [Concomitant]
  9. TYLENOL WITH HYDROCODONE (PROCET /01554201/) [Concomitant]
  10. POTASSIUM CHLORIDE [Concomitant]
  11. CALCIUM CARBONATE [Concomitant]
  12. NIACIN [Concomitant]
  13. HYDROCHLOROTHIAZIDE [Concomitant]
  14. BYSTOLIC [Concomitant]
  15. OMEGA-3 (OMEGA-3 TRIGLYCERIDES) [Concomitant]
  16. WELCHOL [Concomitant]
  17. ASPIRIN [Concomitant]
  18. MELOXICAM [Suspect]
     Indication: OSTEOPOROSIS
     Dosage: (15 MG QD)
     Dates: start: 20110901
  19. MELOXICAM [Suspect]
     Indication: ARTHRITIS
     Dosage: (15 MG QD)
     Dates: start: 20110901
  20. SYNTHROID [Concomitant]
  21. ADVAIR DISKUS 100/50 [Concomitant]
  22. PRAZOSIN GITS [Concomitant]
  23. NEXIUM [Concomitant]

REACTIONS (22)
  - RENAL FAILURE ACUTE [None]
  - BLOOD CALCIUM DECREASED [None]
  - BLOOD CHLORIDE INCREASED [None]
  - VITAMIN D DEFICIENCY [None]
  - LABILE HYPERTENSION [None]
  - RENAL FAILURE CHRONIC [None]
  - PAIN [None]
  - UPPER RESPIRATORY TRACT INFECTION [None]
  - MYALGIA [None]
  - HYPERPARATHYROIDISM SECONDARY [None]
  - HYPERTENSIVE NEPHROPATHY [None]
  - NEPHROPATHY TOXIC [None]
  - ARTHRALGIA [None]
  - HAEMATOCRIT DECREASED [None]
  - NEPHROSCLEROSIS [None]
  - BONE PAIN [None]
  - FATIGUE [None]
  - OSTEOPOROSIS [None]
  - WHITE BLOOD CELL COUNT INCREASED [None]
  - BLOOD GLUCOSE DECREASED [None]
  - BLOOD ALBUMIN DECREASED [None]
  - MICTURITION DISORDER [None]
